FAERS Safety Report 15818615 (Version 2)
Quarter: 2019Q1

REPORT INFORMATION
  Report Type: Spontaneous
  Country: US (occurrence: US)
  Receive Date: 20190113
  Receipt Date: 20190129
  Transmission Date: 20190417
  Serious: No
  Sender: FDA-Public Use
  Company Number: US-009507513-1901USA001129

PATIENT
  Age: 20 Year
  Sex: Female

DRUGS (1)
  1. NEXPLANON [Suspect]
     Active Substance: ETONOGESTREL
     Indication: CONTRACEPTION
     Dosage: 68 MILLIGRAM,1 ROD/ 3 YEARS
     Route: 058
     Dates: start: 20181228

REACTIONS (6)
  - Implant site vesicles [Unknown]
  - Implant site erythema [Recovering/Resolving]
  - Dermatitis contact [Recovering/Resolving]
  - Implant site swelling [Not Recovered/Not Resolved]
  - Implant site pruritus [Recovering/Resolving]
  - Implant site irritation [Unknown]

NARRATIVE: CASE EVENT DATE: 201812
